FAERS Safety Report 21648321 (Version 2)
Quarter: 2022Q4

REPORT INFORMATION
  Report Type: Spontaneous
  Country: JP (occurrence: JP)
  Receive Date: 20221128
  Receipt Date: 20221220
  Transmission Date: 20230113
  Serious: Yes (Hospitalization, Other)
  Sender: FDA-Public Use
  Company Number: JP-AMGEN-JPNSP2022204972

PATIENT
  Age: 57 Year
  Sex: Female

DRUGS (8)
  1. AIMOVIG [Suspect]
     Active Substance: ERENUMAB-AOOE
     Indication: Migraine prophylaxis
     Dosage: 70 MILLIGRAM, Q4WK
     Route: 058
     Dates: start: 20220112, end: 20221019
  2. AIMOVIG [Suspect]
     Active Substance: ERENUMAB-AOOE
     Indication: Tension headache
  3. LOMERIZINE HYDROCHLORIDE [Concomitant]
     Active Substance: LOMERIZINE HYDROCHLORIDE
     Indication: Migraine
     Dosage: 5 MILLIGRAM, BID
     Route: 065
  4. TIZANIDINE [Concomitant]
     Active Substance: TIZANIDINE
     Indication: Cervicobrachial syndrome
     Dosage: 1 MILLIGRAM, BID
     Route: 065
  5. LUNESTA [Concomitant]
     Active Substance: ESZOPICLONE
     Indication: Insomnia
     Dosage: 1 MILLIGRAM, DAILY
     Route: 065
  6. ELOBIXIBAT [Concomitant]
     Active Substance: ELOBIXIBAT
     Dosage: 10 MILLIGRAM, DAILY
     Dates: start: 20210707
  7. Tokakujokito [Concomitant]
     Indication: Musculoskeletal stiffness
     Dosage: UNK
     Dates: start: 20210707
  8. SENNOSIDES [Concomitant]
     Active Substance: SENNOSIDES
     Indication: Constipation
     Dosage: 12 MILLIGRAM, AS NEEDED, ONLY ON 20
     Dates: start: 20210407

REACTIONS (5)
  - Mechanical ileus [Recovered/Resolved]
  - Intestinal adhesion lysis [Unknown]
  - Headache [Unknown]
  - Constipation [Recovered/Resolved]
  - Abdominal pain upper [Unknown]

NARRATIVE: CASE EVENT DATE: 20220101
